FAERS Safety Report 23873367 (Version 1)
Quarter: 2024Q2

REPORT INFORMATION
  Report Type: Spontaneous
  Country: US (occurrence: None)
  Receive Date: 20240517
  Receipt Date: 20240517
  Transmission Date: 20240715
  Serious: No
  Sender: FDA-Public Use
  Company Number: None

PATIENT
  Age: 64 Year
  Sex: Male

DRUGS (1)
  1. DUPIXENT [Suspect]
     Active Substance: DUPILUMAB
     Indication: Asthma
     Route: 058
     Dates: start: 20240224, end: 20240504

REACTIONS (4)
  - Rash erythematous [None]
  - Rash pruritic [None]
  - Injection site bruising [None]
  - Therapy interrupted [None]

NARRATIVE: CASE EVENT DATE: 20240224
